FAERS Safety Report 15027897 (Version 1)
Quarter: 2018Q2

REPORT INFORMATION
  Report Type: Spontaneous
  Country: GB (occurrence: GB)
  Receive Date: 20180619
  Receipt Date: 20180619
  Transmission Date: 20180711
  Serious: Yes (Hospitalization)
  Sender: FDA-Public Use
  Company Number: GB-TORRENT-00016643

PATIENT
  Sex: Male

DRUGS (1)
  1. PRAMIPEXOLE. [Suspect]
     Active Substance: PRAMIPEXOLE
     Indication: RESTLESS LEGS SYNDROME
     Dosage: AT NIGHT
     Dates: start: 2003

REACTIONS (10)
  - Withdrawal syndrome [Unknown]
  - Palpitations [Unknown]
  - Hyperhidrosis [Unknown]
  - Anxiety [Unknown]
  - Chills [Unknown]
  - Restlessness [Unknown]
  - Condition aggravated [Unknown]
  - Off label use [Unknown]
  - Fatigue [Unknown]
  - Drug ineffective [Unknown]
